FAERS Safety Report 20592449 (Version 1)
Quarter: 2022Q1

REPORT INFORMATION
  Report Type: Spontaneous
  Country: US (occurrence: None)
  Receive Date: 20220314
  Receipt Date: 20220314
  Transmission Date: 20220424
  Serious: No
  Sender: FDA-Public Use
  Company Number: US-ROCHE-2816275

PATIENT

DRUGS (1)
  1. XOLAIR [Suspect]
     Active Substance: OMALIZUMAB
     Indication: Product used for unknown indication
     Dosage: ONCE A MONTH INJECTION
     Route: 065

REACTIONS (3)
  - Tongue erythema [Unknown]
  - Oral disorder [Unknown]
  - Tongue discomfort [Unknown]
